FAERS Safety Report 17412605 (Version 1)
Quarter: 2020Q1

REPORT INFORMATION
  Report Type: Spontaneous
  Country: None (occurrence: US)
  Receive Date: 20200213
  Receipt Date: 20200213
  Transmission Date: 20200409
  Serious: No
  Sender: FDA-Public Use
  Company Number: US-PERSON AND COVEY-2080264

PATIENT
  Sex: Female

DRUGS (1)
  1. DHS ZINC [Suspect]
     Active Substance: PYRITHIONE ZINC
     Indication: DANDRUFF
     Route: 003

REACTIONS (1)
  - Application site pruritus [Unknown]

NARRATIVE: CASE EVENT DATE: 20190930
